FAERS Safety Report 21877450 (Version 1)
Quarter: 2023Q1

REPORT INFORMATION
  Report Type: Spontaneous
  Country: CN (occurrence: CN)
  Receive Date: 20230118
  Receipt Date: 20230118
  Transmission Date: 20230417
  Serious: Yes (Hospitalization, Other)
  Sender: FDA-Public Use
  Company Number: CN-IPCA LABORATORIES LIMITED-IPC-2023-CN-000068

PATIENT

DRUGS (2)
  1. ALLOPURINOL [Suspect]
     Active Substance: ALLOPURINOL
     Indication: Hyperuricaemia
     Dosage: 250 MILLIGRAM, BID
     Route: 065
  2. ALLOPURINOL [Suspect]
     Active Substance: ALLOPURINOL
     Dosage: 250 MILLIGRAM, QD
     Route: 065

REACTIONS (4)
  - Drug reaction with eosinophilia and systemic symptoms [Recovered/Resolved]
  - Pulmonary sarcoidosis [Recovering/Resolving]
  - Decreased appetite [Recovered/Resolved]
  - Cough [Recovered/Resolved]
